FAERS Safety Report 16775241 (Version 2)
Quarter: 2019Q3

REPORT INFORMATION
  Report Type: Report from Study
  Country: US (occurrence: US)
  Receive Date: 20190905
  Receipt Date: 20190920
  Transmission Date: 20191005
  Serious: Yes (Other)
  Sender: FDA-Public Use
  Company Number: US-TESAROUBC-2019-TSO02851-US

PATIENT
  Age: 80 Year
  Sex: Female

DRUGS (1)
  1. NIRAPARIB [Suspect]
     Active Substance: NIRAPARIB
     Indication: PRODUCT USED FOR UNKNOWN INDICATION
     Dosage: 300 MG, QD
     Route: 048
     Dates: start: 20190726

REACTIONS (12)
  - Constipation [Unknown]
  - Vomiting [Unknown]
  - Neck pain [Unknown]
  - Back pain [Unknown]
  - Urinary retention [Unknown]
  - Taste disorder [Unknown]
  - Product dose omission [Unknown]
  - Blood uric acid increased [Unknown]
  - Micturition urgency [Unknown]
  - Dry mouth [Unknown]
  - Diarrhoea [Unknown]
  - Ureteral stent insertion [Unknown]

NARRATIVE: CASE EVENT DATE: 20190812
